FAERS Safety Report 4919804-1 (Version None)
Quarter: 2006Q1

REPORT INFORMATION
  Report Type: 
  Country: None (occurrence: None)
  Receive Date: 20060216
  Receipt Date: 20060201
  Transmission Date: 20060701
  Serious: Yes (Other)
  Sender: FDA-Public Use
  Company Number: GB200511001888

PATIENT
  Sex: Male
  Weight: 98.5 kg

DRUGS (2)
  1. ZYPREXA [Suspect]
     Indication: SCHIZOPHRENIA
     Dosage: 10 MG, 2/D
     Dates: start: 20050101
  2. CITALOPRAM (CITALOPRAM) [Concomitant]

REACTIONS (6)
  - BLOOD CHOLESTEROL INCREASED [None]
  - INCREASED APPETITE [None]
  - MITRAL VALVE PROLAPSE [None]
  - OEDEMA PERIPHERAL [None]
  - RASH [None]
  - WEIGHT INCREASED [None]
